FAERS Safety Report 16339686 (Version 3)
Quarter: 2019Q3

REPORT INFORMATION
  Report Type: Spontaneous
  Country: BR (occurrence: BR)
  Receive Date: 20190521
  Receipt Date: 20190823
  Transmission Date: 20191004
  Serious: Yes (Other)
  Sender: FDA-Public Use
  Company Number: BR-ELI_LILLY_AND_COMPANY-BR201905004657

PATIENT
  Sex: Female

DRUGS (1)
  1. HUMALOG [Suspect]
     Active Substance: INSULIN LISPRO
     Indication: DIABETES MELLITUS
     Dosage: UNK UNK, TID
     Route: 058

REACTIONS (13)
  - Post procedural swelling [Recovering/Resolving]
  - Incorrect dose administered [Unknown]
  - Benign salivary gland neoplasm [Recovering/Resolving]
  - Diplopia [Not Recovered/Not Resolved]
  - Post procedural haematoma [Recovering/Resolving]
  - Herpes zoster [Not Recovered/Not Resolved]
  - Hypoglycaemia [Unknown]
  - Blood glucose increased [Unknown]
  - Speech disorder [Unknown]
  - Pain of skin [Not Recovered/Not Resolved]
  - Type 1 diabetes mellitus [Unknown]
  - Ophthalmoplegia [Not Recovered/Not Resolved]
  - Myopia [Unknown]

NARRATIVE: CASE EVENT DATE: 2019
